FAERS Safety Report 9301619 (Version 1)
Quarter: 2012Q4

REPORT INFORMATION
  Report Type: Spontaneous
  Country: ES (occurrence: None)
  Receive Date: 20121109
  Receipt Date: 20121109
  Transmission Date: 20130627
  Serious: Yes (Other)
  Sender: FDA-Public Use
  Company Number: 2011S1000705

PATIENT
  Age: 78 Year
  Sex: Male

DRUGS (1)
  1. CUBICIN (DAPTOMYCIN) [Suspect]
     Indication: SEPSIS
     Dates: start: 20110402, end: 20110428

REACTIONS (3)
  - Myocardial infarction [None]
  - Eosinophilic pneumonia [None]
  - Off label use [None]
